FAERS Safety Report 8305430-3 (Version None)
Quarter: 2012Q2

REPORT INFORMATION
  Report Type: 
  Country: None (occurrence: None)
  Receive Date: 20120423
  Receipt Date: 20120417
  Transmission Date: 20120825
  Serious: Yes (Other)
  Sender: FDA-Public Use
  Company Number: PHHY2012US032505

PATIENT
  Age: 47 Year
  Sex: Male

DRUGS (5)
  1. OPIATES [Concomitant]
  2. GABAPENTIN [Concomitant]
  3. CEFAZOLIN [Suspect]
     Dosage: 1 G, DAILY
     Route: 042
  4. CEFAZOLIN [Suspect]
     Indication: STAPHYLOCOCCAL INFECTION
     Route: 042
  5. BENZODIAZEPINES [Concomitant]

REACTIONS (5)
  - STUPOR [None]
  - MYOCLONUS [None]
  - DEPRESSED LEVEL OF CONSCIOUSNESS [None]
  - LETHARGY [None]
  - DRUG LEVEL INCREASED [None]
